FAERS Safety Report 14253543 (Version 4)
Quarter: 2020Q3

REPORT INFORMATION
  Report Type: Spontaneous
  Country: FR (occurrence: FR)
  Receive Date: 20171206
  Receipt Date: 20200708
  Transmission Date: 20201102
  Serious: Yes (Life-Threatening, Other)
  Sender: FDA-Public Use
  Company Number: FR-AUROBINDO-AUR-APL-2017-44386

PATIENT
  Age: 8 Year
  Sex: Male

DRUGS (6)
  1. ETOPOSIDE. [Suspect]
     Active Substance: ETOPOSIDE
     Indication: ATYPICAL TERATOID/RHABDOID TUMOUR OF CNS
     Dosage: 50 MILLIGRAM/SQ. METER
     Route: 065
     Dates: start: 201604
  2. CELECOXIB. [Suspect]
     Active Substance: CELECOXIB
     Indication: ATYPICAL TERATOID/RHABDOID TUMOUR OF CNS
     Dosage: 400 MILLIGRAM,DAY 1; CONTINUOUS
     Route: 048
     Dates: start: 201604
  3. BEVACIZUMAB. [Suspect]
     Active Substance: BEVACIZUMAB
     Indication: ATYPICAL TERATOID/RHABDOID TUMOUR OF CNS
     Dosage: 10 MILLIGRAM/KILOGRAM, EVERY WEEK (DAYS 1,15)
     Route: 042
     Dates: start: 201604
  4. CYTARABINE. [Suspect]
     Active Substance: CYTARABINE
     Indication: ATYPICAL TERATOID/RHABDOID TUMOUR OF CNS
     Dosage: 35 MILLIGRAM (LIPOSOMAL CYTARABINE 35 MG INTRATHECAL DAY 1)
     Route: 039
     Dates: start: 201604
  5. CYCLOPHOSPHAMIDE. [Suspect]
     Active Substance: CYCLOPHOSPHAMIDE
     Indication: ATYPICAL TERATOID/RHABDOID TUMOUR OF CNS
     Dosage: 2.5 MILLIGRAM/KILOGRAM (ALTERNATING 21 DAY CYCLES)
     Route: 048
     Dates: start: 201604
  6. CELECOXIB. [Suspect]
     Active Substance: CELECOXIB
     Indication: ATYPICAL TERATOID/RHABDOID TUMOUR OF CNS
     Dosage: 400 MILLIGRAM, CYCLICAL
     Route: 048
     Dates: start: 201604

REACTIONS (6)
  - Neutropenia [Recovered/Resolved]
  - Product use in unapproved indication [Unknown]
  - Injection site reaction [Unknown]
  - Influenza [Unknown]
  - Asthenia [Unknown]
  - Toxicity to various agents [Unknown]
